FAERS Safety Report 11572840 (Version 1)
Quarter: 2015Q3

REPORT INFORMATION
  Report Type: Spontaneous
  Country: GB (occurrence: GB)
  Receive Date: 20150929
  Receipt Date: 20150929
  Transmission Date: 20151125
  Serious: Yes (Other)
  Sender: FDA-Public Use
  Company Number: GB-JNJFOC-20150925129

PATIENT
  Age: 42 Year
  Sex: Female
  Weight: 80 kg

DRUGS (3)
  1. NORETHISTERONE [Suspect]
     Active Substance: NORETHINDRONE
     Indication: HAEMORRHAGE
     Route: 048
     Dates: start: 20150815, end: 20150904
  2. CODEINE [Concomitant]
     Active Substance: CODEINE
     Route: 065
  3. IBUPROFEN. [Concomitant]
     Active Substance: IBUPROFEN
     Route: 065
     Dates: start: 20150401

REACTIONS (4)
  - Nausea [Recovered/Resolved]
  - Product use issue [Unknown]
  - Migraine [Recovering/Resolving]
  - Tension headache [Recovering/Resolving]

NARRATIVE: CASE EVENT DATE: 20150815
